FAERS Safety Report 6168244-9 (Version None)
Quarter: 2009Q2

REPORT INFORMATION
  Report Type: 
  Country: None (occurrence: None)
  Receive Date: 20090423
  Receipt Date: 20090408
  Transmission Date: 20091009
  Serious: Yes (Other)
  Sender: FDA-Public Use
  Company Number: TRP_06165_2009

PATIENT
  Sex: Male
  Weight: 77.5651 kg

DRUGS (6)
  1. INFERGEN [Suspect]
     Indication: HEPATITIS C
     Dosage: 15 ?G QD SUBCUTANEOUS
     Route: 058
     Dates: start: 20080321
  2. RIBASPHERE (400 MG, 600 MG) (NOT SPECIFIED) [Suspect]
     Indication: HEPATITIS C
     Dosage: 400 MG ORAL, 600 MG ORAL
     Route: 048
     Dates: start: 20080324
  3. RIBASPHERE (400 MG, 600 MG) (NOT SPECIFIED) [Suspect]
     Indication: HEPATITIS C
     Dosage: 400 MG ORAL, 600 MG ORAL
     Route: 048
     Dates: start: 20080324
  4. CELEXA [Suspect]
     Indication: DEPRESSION
     Dosage: 10 MG QD ORAL, 20 MG QD ORAL
     Route: 048
     Dates: start: 20080616, end: 20080601
  5. CELEXA [Suspect]
     Indication: DEPRESSION
     Dosage: 10 MG QD ORAL, 20 MG QD ORAL
     Route: 048
     Dates: start: 20080601
  6. MVI (UNKNOWN UNTIL CONTINUING) [Concomitant]

REACTIONS (20)
  - ALANINE AMINOTRANSFERASE INCREASED [None]
  - ASPARTATE AMINOTRANSFERASE INCREASED [None]
  - DEPRESSION [None]
  - DIZZINESS [None]
  - ERYTHEMA [None]
  - FATIGUE [None]
  - FLAT AFFECT [None]
  - HAEMATOCRIT DECREASED [None]
  - HAEMOGLOBIN DECREASED [None]
  - NAUSEA [None]
  - PLATELET COUNT DECREASED [None]
  - PURULENCE [None]
  - RASH MACULO-PAPULAR [None]
  - RASH PRURITIC [None]
  - RED BLOOD CELL COUNT DECREASED [None]
  - SERUM FERRITIN INCREASED [None]
  - SOMNOLENCE [None]
  - STOMATITIS [None]
  - THIRST [None]
  - WHITE BLOOD CELL COUNT DECREASED [None]
